FAERS Safety Report 10399038 (Version 1)
Quarter: 2014Q3

REPORT INFORMATION
  Report Type: Spontaneous
  Country: DK (occurrence: DK)
  Receive Date: 20140821
  Receipt Date: 20140821
  Transmission Date: 20150326
  Serious: Yes (Death, Hospitalization)
  Sender: FDA-Public Use
  Company Number: PHHY2014DK101911

PATIENT
  Age: 61 Year
  Sex: Male

DRUGS (5)
  1. VINORELBINE [Suspect]
     Active Substance: VINORELBINE\VINORELBINE TARTRATE
     Indication: ADENOCARCINOMA
  2. BEVACIZUMAB [Suspect]
     Active Substance: BEVACIZUMAB
     Indication: ADENOCARCINOMA
  3. CARBOPLATIN. [Suspect]
     Active Substance: CARBOPLATIN
     Indication: ADENOCARCINOMA
  4. PEMETREXED [Suspect]
     Active Substance: PEMETREXED
     Indication: ADENOCARCINOMA
  5. CRIZOTINIB [Suspect]
     Active Substance: CRIZOTINIB
     Indication: ADENOCARCINOMA

REACTIONS (11)
  - Death [Fatal]
  - General physical health deterioration [Unknown]
  - Metastases to retroperitoneum [Unknown]
  - Malignant neoplasm progression [Unknown]
  - Pericardial effusion [Unknown]
  - Dyspnoea [Unknown]
  - Metastases to the mediastinum [Unknown]
  - Metastases to lymph nodes [Unknown]
  - Lung adenocarcinoma [Unknown]
  - Drug effect incomplete [Unknown]
  - Malignant pleural effusion [Unknown]
